FAERS Safety Report 16536108 (Version 3)
Quarter: 2019Q3

REPORT INFORMATION
  Report Type: Spontaneous
  Country: US (occurrence: US)
  Receive Date: 20190705
  Receipt Date: 20190813
  Transmission Date: 20191004
  Serious: No
  Sender: FDA-Public Use
  Company Number: US-PFIZER INC-2019283427

PATIENT
  Age: 63 Year
  Sex: Male

DRUGS (1)
  1. SILVADENE [Suspect]
     Active Substance: SILVER SULFADIAZINE
     Indication: WOUND
     Dosage: UNK, 1X/DAY
     Dates: start: 20190207, end: 20190209

REACTIONS (4)
  - Pain [Recovered/Resolved]
  - Drug eruption [Recovered/Resolved]
  - Contraindicated product prescribed [Unknown]
  - Urticaria [Unknown]

NARRATIVE: CASE EVENT DATE: 20190207
